FAERS Safety Report 5853881-9 (Version None)
Quarter: 2008Q3

REPORT INFORMATION
  Report Type: 
  Country: None (occurrence: None)
  Receive Date: 20080822
  Receipt Date: 20080819
  Transmission Date: 20090109
  Serious: Yes (Death)
  Sender: FDA-Public Use
  Company Number: A0726141A

PATIENT
  Age: 55 Year
  Sex: Male
  Weight: 102.7 kg

DRUGS (7)
  1. AVANDIA [Suspect]
     Dosage: 8MG PER DAY
     Route: 048
     Dates: start: 20011207, end: 20060404
  2. GLUCOPHAGE [Concomitant]
     Dosage: 500MG TWICE PER DAY
     Dates: start: 19990101, end: 20060404
  3. METFORMIN [Concomitant]
     Dosage: 500MG THREE TIMES PER DAY
     Dates: start: 19990101, end: 20060404
  4. GLUCOTROL [Concomitant]
     Dosage: 10MG TWICE PER DAY
     Dates: start: 19990101, end: 20060404
  5. PLAVIX [Concomitant]
     Indication: THROMBOSIS PROPHYLAXIS
  6. LISINOPRIL [Concomitant]
     Indication: BLOOD PRESSURE
  7. NIACIN [Concomitant]

REACTIONS (3)
  - CARDIAC DEATH [None]
  - HEART INJURY [None]
  - MYOCARDIAL INFARCTION [None]
